FAERS Safety Report 16276242 (Version 1)
Quarter: 2019Q2

REPORT INFORMATION
  Report Type: Spontaneous
  Country: US (occurrence: US)
  Receive Date: 20190506
  Receipt Date: 20190506
  Transmission Date: 20190711
  Serious: No
  Sender: FDA-Public Use
  Company Number: US-TEVA-2019-US-1047519

PATIENT
  Age: 68 Year
  Sex: Male

DRUGS (1)
  1. NICOTINE. [Suspect]
     Active Substance: NICOTINE
     Indication: EX-TOBACCO USER
     Dosage: GUM
     Dates: start: 20190418, end: 20190421

REACTIONS (5)
  - Decreased appetite [Recovered/Resolved]
  - Pain in extremity [Recovering/Resolving]
  - Toothache [Recovering/Resolving]
  - Fatigue [Recovering/Resolving]
  - Pyrexia [Not Recovered/Not Resolved]
